FAERS Safety Report 4683656-8 (Version None)
Quarter: 2005Q2

REPORT INFORMATION
  Report Type: 
  Country: None (occurrence: None)
  Receive Date: 20050607
  Receipt Date: 20050527
  Transmission Date: 20051028
  Serious: Yes (Other)
  Sender: FDA-Public Use
  Company Number: US-JNJFOC-20050600473

PATIENT
  Sex: Male
  Weight: 58.97 kg

DRUGS (2)
  1. DURAGESIC-100 [Suspect]
     Route: 062
     Dates: start: 20040501
  2. PREDNISONE [Concomitant]
     Indication: CROHN'S DISEASE
     Route: 049
     Dates: start: 20030401

REACTIONS (2)
  - COLON OPERATION [None]
  - HYPERHIDROSIS [None]
